FAERS Safety Report 7952069-5 (Version None)
Quarter: 2011Q4

REPORT INFORMATION
  Report Type: 
  Country: None (occurrence: None)
  Receive Date: 20111201
  Receipt Date: 20111123
  Transmission Date: 20120403
  Serious: Yes (Other)
  Sender: FDA-Public Use
  Company Number: US-ASTRAZENECA-2009UW04370

PATIENT
  Age: 64 Year
  Sex: Female
  Weight: 57.6 kg

DRUGS (13)
  1. GABERPERTIN [Concomitant]
  2. ACTONEL [Concomitant]
  3. ARIMIDEX [Suspect]
     Indication: BREAST CANCER
     Route: 048
     Dates: start: 20060101
  4. SIMVASTATIN [Concomitant]
     Indication: BLOOD CHOLESTEROL ABNORMAL
  5. DIAZEPAM [Concomitant]
     Indication: SLEEP DISORDER
  6. NEXIUM [Suspect]
     Route: 048
     Dates: start: 20110901
  7. VICODIN [Concomitant]
  8. MULTI-VITAMINS [Concomitant]
     Indication: MEDICAL DIET
     Dosage: UNKNOWN DOSE DAILY
  9. CALCIUM CITRATE WITH VIT. D [Concomitant]
     Indication: OSTEOPENIA
     Dosage: UNKNOWN DOSE THREE TIMES A DAY
  10. ASPIRIN [Concomitant]
  11. OMEPRAZOLE [Concomitant]
     Indication: GASTRIC DISORDER
     Route: 048
  12. DIAZEPAM [Concomitant]
     Indication: ANXIETY
  13. HYCODOHL [Concomitant]

REACTIONS (13)
  - DECREASED APPETITE [None]
  - SALIVARY HYPERSECRETION [None]
  - BONE DISORDER [None]
  - OSTEOARTHRITIS [None]
  - CONSTIPATION [None]
  - DYSGEUSIA [None]
  - ANXIETY [None]
  - HYPOAESTHESIA [None]
  - SCOLIOSIS [None]
  - ASTHENIA [None]
  - CERVICAL SPINAL STENOSIS [None]
  - WEIGHT DECREASED [None]
  - GASTRITIS [None]
